FAERS Safety Report 14157514 (Version 1)
Quarter: 2017Q4

REPORT INFORMATION
  Report Type: Spontaneous
  Country: IT (occurrence: SA)
  Receive Date: 20171103
  Receipt Date: 20171103
  Transmission Date: 20180321
  Serious: Yes (Other)
  Sender: FDA-Public Use
  Company Number: PHHY2017SA162386

PATIENT
  Age: 19 Year
  Sex: Female

DRUGS (1)
  1. MEGION [Suspect]
     Active Substance: CEFTRIAXONE SODIUM
     Indication: PRODUCT USED FOR UNKNOWN INDICATION
     Dosage: 1 G, UNK
     Route: 042

REACTIONS (1)
  - Anaphylactic shock [Recovered/Resolved]
